FAERS Safety Report 6377501-2 (Version None)
Quarter: 2009Q3

REPORT INFORMATION
  Report Type: 
  Country: None (occurrence: None)
  Receive Date: 20090923
  Receipt Date: 20090923
  Transmission Date: 20100115
  Serious: Yes (Life-Threatening, Hospitalization)
  Sender: FDA-Public Use
  Company Number: None

PATIENT
  Age: 44 Year
  Sex: Male
  Weight: 79.6 kg

DRUGS (7)
  1. PERCOCET [Suspect]
     Dates: start: 20090802
  2. EXCEDRIN (MIGRAINE) [Suspect]
  3. ATENOLOL [Concomitant]
  4. CITALOPRAM HYDROBROMIDE [Concomitant]
  5. GLYBURIDE [Concomitant]
  6. OXYBUTYNIN CHLORIDE [Concomitant]
  7. METOCLOPRAMIDE [Concomitant]

REACTIONS (4)
  - ALCOHOL USE [None]
  - ASPARTATE AMINOTRANSFERASE INCREASED [None]
  - INCORRECT DOSE ADMINISTERED [None]
  - SUICIDE ATTEMPT [None]
